FAERS Safety Report 4968734-8 (Version None)
Quarter: 2006Q2

REPORT INFORMATION
  Report Type: 
  Country: None (occurrence: None)
  Receive Date: 20060411
  Receipt Date: 20060329
  Transmission Date: 20061013
  Serious: Yes (Other)
  Sender: FDA-Public Use
  Company Number: PHFR2006GB01298

PATIENT
  Age: 35 Year
  Sex: Female

DRUGS (1)
  1. ESTRADERM [Suspect]
     Dosage: 100 MG, QW2

REACTIONS (2)
  - CONCOMITANT DISEASE AGGRAVATED [None]
  - MEMORY IMPAIRMENT [None]
